FAERS Safety Report 5027049-2 (Version None)
Quarter: 2006Q2

REPORT INFORMATION
  Report Type: 
  Country: None (occurrence: None)
  Receive Date: 20060609
  Receipt Date: 20060530
  Transmission Date: 20061013
  Serious: Yes (Hospitalization, Other)
  Sender: FDA-Public Use
  Company Number: 2006070185

PATIENT
  Age: 37 Year
  Sex: Female
  Weight: 49.8957 kg

DRUGS (2)
  1. ZOLOFT [Suspect]
     Indication: BOWEL MOVEMENT IRREGULARITY
     Dosage: 100 MG (100 MG, 1 IN 1 D)
     Dates: end: 20060529
  2. PREVACID [Concomitant]

REACTIONS (12)
  - ASTHENIA [None]
  - DRUG HYPERSENSITIVITY [None]
  - ERYTHEMA [None]
  - FALL [None]
  - FOOT FRACTURE [None]
  - PAIN [None]
  - RASH MACULO-PAPULAR [None]
  - RASH PUSTULAR [None]
  - SKIN INFECTION [None]
  - SLEEP DISORDER [None]
  - STAPHYLOCOCCAL INFECTION [None]
  - THERMAL BURN [None]
